FAERS Safety Report 5457966-0 (Version None)
Quarter: 2007Q3

REPORT INFORMATION
  Report Type: 
  Country: None (occurrence: None)
  Receive Date: 20070917
  Receipt Date: 20070904
  Transmission Date: 20080115
  Serious: Yes (Other)
  Sender: FDA-Public Use
  Company Number: US021187

PATIENT
  Age: 74 Year
  Sex: Female

DRUGS (1)
  1. ACTIQ [Suspect]
     Dosage: BUCCAL
     Route: 002

REACTIONS (5)
  - DELUSION [None]
  - DRUG TOXICITY [None]
  - HALLUCINATION [None]
  - LETHARGY [None]
  - SOMNOLENCE [None]
